FAERS Safety Report 5188822-3 (Version None)
Quarter: 2006Q4

REPORT INFORMATION
  Report Type: 
  Country: None (occurrence: None)
  Receive Date: 20061215
  Receipt Date: 20061212
  Transmission Date: 20070319
  Serious: Yes (Death, Hospitalization)
  Sender: FDA-Public Use
  Company Number: HQWYE516103OCT06

PATIENT
  Age: 47 Year
  Sex: Male

DRUGS (13)
  1. RAPAMUNE [Suspect]
     Indication: PROPHYLAXIS AGAINST TRANSPLANT REJECTION
     Dosage: 1 MG 1X PER 1 DAY, ORAL; SEE IMAGE
     Route: 048
     Dates: start: 20060517, end: 20060531
  2. RAPAMUNE [Suspect]
     Indication: PROPHYLAXIS AGAINST TRANSPLANT REJECTION
     Dosage: 1 MG 1X PER 1 DAY, ORAL; SEE IMAGE
     Route: 048
     Dates: start: 20060601, end: 20060724
  3. MYCOPHENOLATE MOFETIL [Concomitant]
  4. TACROLIMUS (TACROLIMUS) [Concomitant]
  5. DIFLUCAN [Concomitant]
  6. METHOCARBAMOL [Concomitant]
  7. URSODIOL (URSODEOXYCHOLIC ACID) [Concomitant]
  8. AMBIEN [Concomitant]
  9. PROTONIX [Concomitant]
  10. ZYVOX [Concomitant]
  11. PREDNISONE TAB [Concomitant]
  12. BETAGAN [Concomitant]
  13. LOPRESSOR [Concomitant]

REACTIONS (11)
  - COMPLICATIONS OF TRANSPLANTED LIVER [None]
  - CYTOMEGALOVIRUS INFECTION [None]
  - HEPATIC ISCHAEMIA [None]
  - HEPATIC NECROSIS [None]
  - HEPATITIS C [None]
  - HYPOTENSION [None]
  - HYPOXIA [None]
  - LIVER TRANSPLANT REJECTION [None]
  - PYREXIA [None]
  - REFUSAL OF TREATMENT BY RELATIVE [None]
  - TACHYPNOEA [None]
